FAERS Safety Report 5578118-X (Version None)
Quarter: 2007Q4

REPORT INFORMATION
  Report Type: 
  Country: None (occurrence: None)
  Receive Date: 20071231
  Receipt Date: 20071106
  Transmission Date: 20080405
  Serious: Yes (Death)
  Sender: FDA-Public Use
  Company Number: US-PURDUE-USA_2007_0030779

PATIENT
  Age: 49 Year
  Sex: Male

DRUGS (1)
  1. OXYCONTIN [Suspect]
     Indication: BACK PAIN
     Dosage: UNK, SEE TEXT
     Dates: start: 20000501

REACTIONS (1)
  - DRUG WITHDRAWAL SYNDROME [None]
